FAERS Safety Report 23457061 (Version 2)
Quarter: 2024Q1

REPORT INFORMATION
  Report Type: Spontaneous
  Country: CN (occurrence: CN)
  Receive Date: 20240130
  Receipt Date: 20240318
  Transmission Date: 20240409
  Serious: Yes (Death, Hospitalization, Other)
  Sender: FDA-Public Use
  Company Number: CN-Jiangsu Hansoh Pharmaceutical Co., Ltd-2152298

PATIENT
  Sex: Female

DRUGS (2)
  1. PEMETREXED [Suspect]
     Active Substance: PEMETREXED
     Route: 041
     Dates: start: 20231108, end: 20231108
  2. CARBOPLATIN [Suspect]
     Active Substance: CARBOPLATIN
     Route: 041
     Dates: start: 20231108, end: 20231108

REACTIONS (5)
  - Disease progression [Fatal]
  - Vomiting [Not Recovered/Not Resolved]
  - Nausea [Not Recovered/Not Resolved]
  - Headache [Not Recovered/Not Resolved]
  - Hypokalaemia [Recovering/Resolving]

NARRATIVE: CASE EVENT DATE: 20231110
